FAERS Safety Report 4660454-2 (Version None)
Quarter: 2005Q2

REPORT INFORMATION
  Report Type: 
  Country: None (occurrence: None)
  Receive Date: 20050512
  Receipt Date: 20041203
  Transmission Date: 20051028
  Serious: Yes (Death)
  Sender: FDA-Public Use
  Company Number: GB-GLAXOSMITHKLINE-B0359714A

PATIENT
  Sex: Male

DRUGS (3)
  1. PAROXETINE HCL [Suspect]
     Indication: DEPRESSION
     Route: 065
     Dates: start: 19970101
  2. DIAZEPAM [Concomitant]
  3. LORAZEPAM [Concomitant]

REACTIONS (14)
  - AFFECTIVE DISORDER [None]
  - ANXIETY [None]
  - CHRONIC OBSTRUCTIVE PULMONARY DISEASE [None]
  - COMPLETED SUICIDE [None]
  - DECREASED APPETITE [None]
  - DELUSION [None]
  - DEPRESSED MOOD [None]
  - DISTURBANCE IN ATTENTION [None]
  - DYSPNOEA [None]
  - INJURY ASPHYXIATION [None]
  - SELF MUTILATION [None]
  - SLEEP DISORDER [None]
  - SUICIDAL IDEATION [None]
  - WEIGHT DECREASED [None]
